FAERS Safety Report 16321183 (Version 2)
Quarter: 2020Q2

REPORT INFORMATION
  Report Type: Spontaneous
  Country: GB (occurrence: GB)
  Receive Date: 20190516
  Receipt Date: 20200409
  Transmission Date: 20200713
  Serious: Yes (Hospitalization, Disabling, Other)
  Sender: FDA-Public Use
  Company Number: GB-PFIZER INC-2019201512

PATIENT
  Age: 71 Year
  Sex: Female
  Weight: 53.1 kg

DRUGS (9)
  1. BENEPALI [Concomitant]
     Active Substance: ETANERCEPT
  2. NAPROXEN. [Concomitant]
     Active Substance: NAPROXEN
  3. FOLIC ACID. [Concomitant]
     Active Substance: FOLIC ACID
  4. ZOLEDRONIC ACID [Suspect]
     Active Substance: ZOLEDRONIC ACID
     Indication: OSTEOPOROSIS
     Dosage: 5 MG, ONCE A YEAR
     Route: 042
     Dates: start: 2015, end: 2018
  5. METHOTREXATE. [Concomitant]
     Active Substance: METHOTREXATE
  6. ADCAL D3 [Concomitant]
     Active Substance: CALCIUM CARBONATE\CHOLECALCIFEROL
  7. COCODAMOL [Concomitant]
     Active Substance: ACETAMINOPHEN\CODEINE PHOSPHATE
  8. DULOXETINE. [Concomitant]
     Active Substance: DULOXETINE
  9. LANSOPRAZOLE. [Concomitant]
     Active Substance: LANSOPRAZOLE

REACTIONS (3)
  - Product use in unapproved indication [Recovered/Resolved]
  - Atypical fracture [Recovered/Resolved]
  - Off label use [Recovered/Resolved]

NARRATIVE: CASE EVENT DATE: 2015
